FAERS Safety Report 5635626-0 (Version None)
Quarter: 2008Q1

REPORT INFORMATION
  Report Type: 
  Country: None (occurrence: None)
  Receive Date: 20080219
  Receipt Date: 20080205
  Transmission Date: 20080703
  Serious: Yes (Hospitalization)
  Sender: FDA-Public Use
  Company Number: MEDI-0006528

PATIENT
  Age: 9 Month
  Sex: Male

DRUGS (3)
  1. SYNAGIS [Suspect]
     Indication: PREMATURE BABY
     Dosage: 50 MG, 1 IN 1 M; 50 MG, 1 IN 1 M; 50 MG, 1 IN 1 M
     Dates: start: 20070901, end: 20071112
  2. SYNAGIS [Suspect]
     Indication: PREMATURE BABY
     Dosage: 50 MG, 1 IN 1 M; 50 MG, 1 IN 1 M; 50 MG, 1 IN 1 M
     Dates: start: 20070901
  3. SYNAGIS [Suspect]
     Indication: PREMATURE BABY
     Dosage: 50 MG, 1 IN 1 M; 50 MG, 1 IN 1 M; 50 MG, 1 IN 1 M
     Dates: start: 20071011

REACTIONS (2)
  - PNEUMONIA RESPIRATORY SYNCYTIAL VIRAL [None]
  - SEPSIS [None]
